FAERS Safety Report 14113828 (Version 1)
Quarter: 2017Q4

REPORT INFORMATION
  Report Type: Spontaneous
  Country: US (occurrence: US)
  Receive Date: 20171023
  Receipt Date: 20171023
  Transmission Date: 20180321
  Serious: No
  Sender: FDA-Public Use
  Company Number: US-APOTEX-2017AP019262

PATIENT

DRUGS (1)
  1. MOXIFIOXACIN OPHTHALMIC SOLUTION USP [Suspect]
     Active Substance: MOXIFLOXACIN
     Indication: PRODUCT USED FOR UNKNOWN INDICATION
     Dosage: INTO THE RIGHT EYE FOR FOUR TIMES A DAY
     Route: 047

REACTIONS (2)
  - Throat irritation [Unknown]
  - Product substitution issue [Unknown]
